FAERS Safety Report 5052417-2 (Version None)
Quarter: 2006Q3

REPORT INFORMATION
  Report Type: 
  Country: None (occurrence: None)
  Receive Date: 20060714
  Receipt Date: 20060714
  Transmission Date: 20061208
  Serious: Yes (Disabling, Other)
  Sender: FDA-Public Use
  Company Number: None

PATIENT
  Age: 58 Year
  Sex: Male

DRUGS (1)
  1. PHOSPHOSODA UNFLAVORED [Suspect]
     Indication: SIGMOIDOSCOPY
     Dosage: 45ML; X1; PO
     Route: 048
     Dates: start: 20040120, end: 20040120

REACTIONS (3)
  - ANAEMIA [None]
  - RENAL FAILURE [None]
  - RENAL FAILURE ACUTE [None]
